FAERS Safety Report 8392233-7 (Version None)
Quarter: 2012Q2

REPORT INFORMATION
  Report Type: 
  Country: None (occurrence: None)
  Receive Date: 20120529
  Receipt Date: 20120523
  Transmission Date: 20120825
  Serious: Yes (Other)
  Sender: FDA-Public Use
  Company Number: BR-GILEAD-2012-0054957

PATIENT
  Sex: Female

DRUGS (9)
  1. RANITIDINE [Concomitant]
     Indication: PRODUCT USED FOR UNKNOWN INDICATION
     Dosage: 300 MG, QD
  2. ATAZANAVIR [Suspect]
     Indication: PROPHYLAXIS AGAINST HIV INFECTION
     Dosage: 400 MG, QD
     Route: 048
     Dates: start: 20081203
  3. LAMIVUDINE [Suspect]
     Indication: PROPHYLAXIS AGAINST HIV INFECTION
     Dosage: 300 MG, QD
     Route: 048
     Dates: start: 20081203
  4. METRONIDAZOL                       /00012501/ [Concomitant]
     Indication: VAGINITIS BACTERIAL
     Dosage: 500 MG, TID
     Dates: start: 20111121, end: 20111128
  5. MICONAZOLE [Concomitant]
     Indication: VULVOVAGINAL CANDIDIASIS
     Dosage: UNK
     Route: 061
     Dates: start: 20111206
  6. TENOFOVIR DISOPROXIL FUMARATE [Suspect]
     Indication: PROPHYLAXIS AGAINST HIV INFECTION
     Dosage: 300 MG, QD
     Route: 048
     Dates: start: 20090507
  7. RITONAVIR [Concomitant]
     Indication: ANTIRETROVIRAL THERAPY
     Dosage: 100 MG, QD
  8. AMPICILLIN [Concomitant]
     Indication: URINARY TRACT INFECTION
     Dosage: 500 MG, QID
     Dates: start: 20111206, end: 20111213
  9. FOLIC ACID [Concomitant]
     Indication: PRODUCT USED FOR UNKNOWN INDICATION
     Dosage: 5 MG, QD
     Dates: start: 20111121, end: 20120508

REACTIONS (1)
  - STILLBIRTH [None]
